FAERS Safety Report 15760313 (Version 1)
Quarter: 2018Q4

REPORT INFORMATION
  Report Type: Spontaneous
  Country: US (occurrence: US)
  Receive Date: 20181224
  Receipt Date: 20181224
  Transmission Date: 20190205
  Serious: No
  Sender: FDA-Public Use
  Company Number: None

PATIENT
  Age: 27 Year
  Sex: Female
  Weight: 90 kg

DRUGS (1)
  1. METRONIDAZOLE. [Suspect]
     Active Substance: METRONIDAZOLE
     Indication: VAGINAL INFECTION
     Route: 048
     Dates: start: 20181214, end: 20181219

REACTIONS (3)
  - Noninfective gingivitis [None]
  - Tongue disorder [None]
  - Cheilitis [None]

NARRATIVE: CASE EVENT DATE: 20181217
